FAERS Safety Report 12719930 (Version 1)
Quarter: 2016Q3

REPORT INFORMATION
  Report Type: Spontaneous
  Country: US (occurrence: US)
  Receive Date: 20160907
  Receipt Date: 20160907
  Transmission Date: 20161109
  Serious: Yes (Disabling)
  Sender: FDA-Public Use
  Company Number: None

PATIENT
  Age: 83 Year
  Sex: Male
  Weight: 65.25 kg

DRUGS (11)
  1. VIT B-12 [Concomitant]
  2. CHLOROPHENIRAMINE [Concomitant]
  3. VITAMIN D3 [Concomitant]
     Active Substance: CHOLECALCIFEROL
  4. ASPIRIN. [Concomitant]
     Active Substance: ASPIRIN
  5. DIPHENHYDRAMINE. [Concomitant]
     Active Substance: DIPHENHYDRAMINE
  6. CAMGZN [Concomitant]
     Active Substance: CALCIUM\MAGNESIUM\ZINC
  7. GABAPENTIN. [Suspect]
     Active Substance: GABAPENTIN
     Indication: NEUROPATHY PERIPHERAL
     Route: 048
     Dates: start: 20160803, end: 20160827
  8. MULTIVITAMIN [Concomitant]
     Active Substance: VITAMINS
  9. FERROUS GLUCONATE [Concomitant]
     Active Substance: FERROUS GLUCONATE
  10. LISINOPRIL. [Concomitant]
     Active Substance: LISINOPRIL
  11. LIPITOR [Concomitant]
     Active Substance: ATORVASTATIN CALCIUM

REACTIONS (1)
  - Peripheral venous disease [None]

NARRATIVE: CASE EVENT DATE: 20160815
